FAERS Safety Report 10874905 (Version 5)
Quarter: 2015Q2

REPORT INFORMATION
  Report Type: Spontaneous
  Country: US (occurrence: US)
  Receive Date: 20150227
  Receipt Date: 20150522
  Transmission Date: 20150821
  Serious: Yes (Hospitalization, Other)
  Sender: FDA-Public Use
  Company Number: US-PFIZER INC-2015069760

PATIENT
  Age: 63 Year
  Sex: Female

DRUGS (1)
  1. ATORVASTATIN CALCIUM. [Suspect]
     Active Substance: ATORVASTATIN CALCIUM
     Dosage: 20 MG, 1X/DAY

REACTIONS (9)
  - Eczema [Recovered/Resolved]
  - Atrial fibrillation [Not Recovered/Not Resolved]
  - Colitis ulcerative [Unknown]
  - Rash [Recovered/Resolved]
  - Pruritus generalised [Recovered/Resolved]
  - Diverticulitis [Unknown]
  - Pain [Unknown]
  - Reaction to drug excipients [Recovered/Resolved]
  - Abdominal discomfort [Unknown]
